FAERS Safety Report 7792087-3 (Version None)
Quarter: 2011Q4

REPORT INFORMATION
  Report Type: 
  Country: None (occurrence: None)
  Receive Date: 20111003
  Receipt Date: 20110926
  Transmission Date: 20120403
  Serious: Yes (Other)
  Sender: FDA-Public Use
  Company Number: FR-UCBSA-038501

PATIENT
  Sex: Male

DRUGS (4)
  1. NEUPRO [Suspect]
     Indication: PARKINSON'S DISEASE
     Dosage: 6MG/24H
     Route: 062
  2. MODOPAR [Suspect]
     Indication: PARKINSON'S DISEASE
     Dosage: 450MG DAILY
     Route: 048
  3. TRIHEXYPHENIDYL HYDROCHLORIDE [Concomitant]
     Indication: PARKINSON'S DISEASE
     Dosage: 1 UNIT IN TWO DAYS
     Route: 048
  4. MODOPAR [Suspect]
     Dosage: DAILY DOSE:375MG

REACTIONS (3)
  - SOMNOLENCE [None]
  - FEELING DRUNK [None]
  - OROMANDIBULAR DYSTONIA [None]
